FAERS Safety Report 5043786-8 (Version None)
Quarter: 2006Q2

REPORT INFORMATION
  Report Type: 
  Country: None (occurrence: None)
  Receive Date: 20060629
  Receipt Date: 20060620
  Transmission Date: 20061013
  Serious: Yes (Life-Threatening, Other)
  Sender: FDA-Public Use
  Company Number: 2006US001165

PATIENT
  Age: 69 Year
  Sex: Male

DRUGS (8)
  1. AMBISOME [Suspect]
     Indication: SYSTEMIC CANDIDA
     Dosage: 1 MG/KG, UNK, IV NOS - SEE IMAGE
     Route: 042
     Dates: start: 20060422, end: 20060513
  2. AMBISOME [Suspect]
     Indication: SYSTEMIC CANDIDA
     Dosage: 1 MG/KG, UNK, IV NOS - SEE IMAGE
     Route: 042
     Dates: start: 20060519, end: 20060602
  3. AMLODIPINE [Suspect]
     Indication: HYPERTENSION
     Dosage: 5 MG, UID/QD, ORAL
     Route: 048
     Dates: end: 20060525
  4. CETIRIZINE(CETIRIZINE) [Suspect]
     Indication: PRURITUS
     Dosage: 10 MG, UID/QD, ORAL
     Route: 048
     Dates: start: 20060523
  5. OMEPRAZOLE [Concomitant]
  6. CALCIUM CARBONATE       (CALCICHEW) [Concomitant]
  7. DARBEPOETIN ALFA (DARBEPOETIN ALFA) [Concomitant]
  8. SODIUM BICARBONAT (SODIUM BICARBONATE) [Concomitant]

REACTIONS (5)
  - ARRHYTHMIA SUPRAVENTRICULAR [None]
  - ATRIAL FLUTTER [None]
  - BLOOD MAGNESIUM DECREASED [None]
  - BLOOD PRESSURE DECREASED [None]
  - HAEMOGLOBIN DECREASED [None]
